FAERS Safety Report 18717011 (Version 3)
Quarter: 2021Q3

REPORT INFORMATION
  Report Type: Spontaneous
  Country: US (occurrence: US)
  Receive Date: 20210108
  Receipt Date: 20210813
  Transmission Date: 20211014
  Serious: Yes (Other)
  Sender: FDA-Public Use
  Company Number: US-PFIZER INC-2015344001

PATIENT
  Age: 58 Year
  Sex: Female

DRUGS (17)
  1. LYRICA [Suspect]
     Active Substance: PREGABALIN
     Indication: NEURALGIA
     Dosage: 100 MG, ONCE A DAY (EVERY EVENING)
     Route: 048
     Dates: start: 20160513
  2. LYRICA [Suspect]
     Active Substance: PREGABALIN
     Dosage: 150 MG TWICE A DAY (AT NOON AND IN THE EVENING)
     Route: 048
     Dates: start: 20160923
  3. ABILIFY [Concomitant]
     Active Substance: ARIPIPRAZOLE
     Dosage: 30 MG, DAILY
     Route: 048
  4. ULTRAM [Concomitant]
     Active Substance: TRAMADOL HYDROCHLORIDE
     Indication: PAIN
     Dosage: 1?2 TABLET (50 TO 100MG) EVERY 6 HOURS AS NEEDED
     Route: 048
  5. KLONOPIN [Concomitant]
     Active Substance: CLONAZEPAM
     Dosage: 0.5 MG, AS NEEDED
     Route: 048
  6. FORTEO [Concomitant]
     Active Substance: TERIPARATIDE
     Dosage: 20 UG, DAILY
     Route: 058
  7. KLONOPIN [Concomitant]
     Active Substance: CLONAZEPAM
     Dosage: 0.5 MG, 3X/DAY
     Route: 048
  8. LYRICA [Suspect]
     Active Substance: PREGABALIN
     Indication: MYOFASCIAL PAIN SYNDROME
     Dosage: 100 MG CAPSULE (100 MG) EVERY MORNING 150 MG CAPSULE TWO TIMES DAILY AT NOON AND IN THE EVENING
     Route: 048
     Dates: start: 20151007
  9. LYRICA [Suspect]
     Active Substance: PREGABALIN
     Dosage: 100 MG, DAILY (EVERY MORNING)
     Route: 048
     Dates: start: 20160923
  10. HYDRODIURIL [Concomitant]
     Active Substance: HYDROCHLOROTHIAZIDE
     Dosage: 25 MG, DAILY
     Route: 048
  11. AUGMENTIN [Concomitant]
     Active Substance: AMOXICILLIN\CLAVULANATE POTASSIUM
     Dosage: 1 DF, 2X/DAY (875?125 MG PER TABLET)
     Route: 048
  12. COREG [Concomitant]
     Active Substance: CARVEDILOL
     Dosage: 6.25 MG, 2X/DAY
     Route: 048
  13. LYRICA [Suspect]
     Active Substance: PREGABALIN
     Dosage: 150 MG TWICE DAILY AT NOON AND IN THE EVENING
     Route: 048
     Dates: start: 20160624
  14. LYRICA [Suspect]
     Active Substance: PREGABALIN
     Dosage: 150 MG, THREE TIMES A DAY (AT NOON AND IN THE EVENING)
     Route: 048
     Dates: start: 20161101
  15. VITAMIN D3 [Concomitant]
     Active Substance: CHOLECALCIFEROL
     Dosage: 2000 IU, DAILY
     Route: 048
  16. LEXAPRO [Concomitant]
     Active Substance: ESCITALOPRAM OXALATE
     Dosage: 20 MG, DAILY
     Route: 048
  17. MULTIVITAMINS [Concomitant]
     Active Substance: VITAMINS
     Dosage: 2 DF, DAILY
     Route: 048

REACTIONS (2)
  - Drug dependence [Unknown]
  - Withdrawal syndrome [Unknown]
